FAERS Safety Report 10203232 (Version 1)
Quarter: 2014Q2

REPORT INFORMATION
  Report Type: Report from Study
  Country: US (occurrence: US)
  Receive Date: 20140529
  Receipt Date: 20140529
  Transmission Date: 20141212
  Serious: Yes (Other)
  Sender: FDA-Public Use
  Company Number: US-ROCHE-1405704

PATIENT
  Age: 20 Year
  Sex: Male
  Weight: 46.1 kg

DRUGS (4)
  1. NUTROPIN AQ [Suspect]
     Indication: GROWTH HORMONE DEFICIENCY
     Route: 058
  2. CORTEF [Concomitant]
     Dosage: PRN
     Route: 048
  3. SOLU-CORTEF [Concomitant]
     Dosage: PRN
     Route: 065
  4. SYNTHROID [Concomitant]
     Route: 048

REACTIONS (4)
  - Insulin-like growth factor decreased [Unknown]
  - Insulin-like growth factor decreased [Unknown]
  - Vitamin D deficiency [Unknown]
  - Weight gain poor [Unknown]
